FAERS Safety Report 8216390-8 (Version None)
Quarter: 2012Q1

REPORT INFORMATION
  Report Type: 
  Country: None (occurrence: None)
  Receive Date: 20120316
  Receipt Date: 20120314
  Transmission Date: 20120608
  Serious: Yes (Other)
  Sender: FDA-Public Use
  Company Number: PHHY2012JP022713

PATIENT
  Age: 72 Year
  Sex: Male

DRUGS (3)
  1. DIOVAN [Suspect]
     Indication: HYPERTENSION
     Dosage: 80 MG, QD
     Route: 048
  2. CONIEL [Concomitant]
     Dosage: 8 MG
     Route: 048
  3. LIPITOR [Concomitant]
     Dosage: 10 MG
     Route: 048

REACTIONS (2)
  - FALL [None]
  - ALTERED STATE OF CONSCIOUSNESS [None]
